FAERS Safety Report 16435312 (Version 1)
Quarter: 2019Q2

REPORT INFORMATION
  Report Type: Spontaneous
  Country: GB (occurrence: GB)
  Receive Date: 20190614
  Receipt Date: 20190614
  Transmission Date: 20190711
  Serious: Yes (Other)
  Sender: FDA-Public Use
  Company Number: GB-MYLANLABS-2019M1055037

PATIENT
  Age: 26 Year
  Sex: Female
  Weight: 55 kg

DRUGS (2)
  1. TOPIRAMATE. [Suspect]
     Active Substance: TOPIRAMATE
     Indication: HEMIPLEGIC MIGRAINE
     Dosage: 250 MILLIGRAM
     Route: 048
     Dates: start: 201704
  2. CAFFEINE W/CODEINE PHOSPHATE/PARACETAMOL [Concomitant]
     Active Substance: ACETAMINOPHEN\CAFFEINE\CODEINE PHOSPHATE
     Dosage: UNK

REACTIONS (6)
  - Eye discharge [Unknown]
  - Eye pain [Recovered/Resolved]
  - Alcohol interaction [Unknown]
  - Eye irritation [Recovered/Resolved]
  - Ocular hyperaemia [Unknown]
  - Eyelid function disorder [Unknown]

NARRATIVE: CASE EVENT DATE: 20181207
